FAERS Safety Report 5001466-9 (Version None)
Quarter: 2006Q2

REPORT INFORMATION
  Report Type: 
  Country: None (occurrence: None)
  Receive Date: 20060512
  Receipt Date: 20051005
  Transmission Date: 20061013
  Serious: Yes (Hospitalization, Disabling, Other)
  Sender: FDA-Public Use
  Company Number: US-MERCK-0510USA04335

PATIENT
  Age: 61 Year
  Sex: Male
  Weight: 100 kg

DRUGS (3)
  1. VIOXX [Suspect]
     Indication: PAIN
     Route: 048
     Dates: start: 20000308, end: 20030601
  2. VIOXX [Suspect]
     Indication: INFLAMMATION
     Route: 048
     Dates: start: 20000308, end: 20030601
  3. ASPIRIN [Concomitant]
     Route: 065

REACTIONS (32)
  - ANAEMIA [None]
  - ARTHROPATHY [None]
  - BLOOD CREATINE PHOSPHOKINASE INCREASED [None]
  - BLOOD DISORDER [None]
  - CARDIAC DISORDER [None]
  - CARDIAC FAILURE CONGESTIVE [None]
  - CARDIOLIPIN ANTIBODY POSITIVE [None]
  - CHEST PAIN [None]
  - CORONARY ARTERY DISEASE [None]
  - CROHN'S DISEASE [None]
  - CYST REMOVAL [None]
  - FATIGUE [None]
  - GENERAL SYMPTOM [None]
  - HEADACHE [None]
  - HEPATIC ENZYME INCREASED [None]
  - HYPERHOMOCYSTEINAEMIA [None]
  - HYPERLIPIDAEMIA [None]
  - HYPERTENSION [None]
  - HYPOACUSIS [None]
  - HYPONATRAEMIA [None]
  - INCISION SITE HAEMORRHAGE [None]
  - INTERMITTENT CLAUDICATION [None]
  - MYALGIA [None]
  - MYOCARDIAL INFARCTION [None]
  - MYOCARDIAL ISCHAEMIA [None]
  - NECK PAIN [None]
  - PULMONARY FUNCTION TEST DECREASED [None]
  - RENAL FAILURE [None]
  - SHOULDER PAIN [None]
  - SINUS CONGESTION [None]
  - ULCER [None]
  - WEIGHT DECREASED [None]
